FAERS Safety Report 11037317 (Version 2)
Quarter: 2015Q2

REPORT INFORMATION
  Report Type: Spontaneous
  Country: US (occurrence: US)
  Receive Date: 20150416
  Receipt Date: 20150622
  Transmission Date: 20150821
  Serious: No
  Sender: FDA-Public Use
  Company Number: US-PFIZER INC-2015130721

PATIENT
  Age: 58 Year
  Sex: Female
  Weight: 109 kg

DRUGS (4)
  1. LYRICA [Suspect]
     Active Substance: PREGABALIN
     Indication: NEUROPATHY PERIPHERAL
     Dosage: 50 MG, 2X/DAY
     Route: 048
  2. CELEBREX [Suspect]
     Active Substance: CELECOXIB
     Indication: NEUROPATHY PERIPHERAL
     Dosage: 200 MG, 2X/DAY
     Route: 048
  3. COLACE [Concomitant]
     Active Substance: DOCUSATE SODIUM
     Indication: FAECES SOFT
     Dosage: UNK UNK, AS NEEDED
  4. AMITRIPTYLINE HCL [Concomitant]
     Active Substance: AMITRIPTYLINE
     Indication: RESTLESS LEGS SYNDROME
     Dosage: 50 MG, 1X/DAY (1 BY MOUTH AT BEDTIME FOR RESTLESS LEG)
     Route: 048

REACTIONS (3)
  - Product use issue [Unknown]
  - Drug prescribing error [Unknown]
  - Pain [Unknown]

NARRATIVE: CASE EVENT DATE: 201503
